FAERS Safety Report 16564882 (Version 1)
Quarter: 2019Q3

REPORT INFORMATION
  Report Type: Spontaneous
  Country: PT (occurrence: PT)
  Receive Date: 20190712
  Receipt Date: 20190712
  Transmission Date: 20191004
  Serious: Yes (Death, Other)
  Sender: FDA-Public Use
  Company Number: PT-FRESENIUS KABI-FK201907616

PATIENT
  Age: 68 Year
  Sex: Male

DRUGS (4)
  1. VANCOMYCIN (MANUFACTURER UNKNOWN) [Suspect]
     Active Substance: VANCOMYCIN
     Indication: PERITONITIS BACTERIAL
     Route: 065
  2. NORADRENALINE (MANUFACTURER UNKNOWN) [Suspect]
     Active Substance: NOREPINEPHRINE
     Indication: PRODUCT USED FOR UNKNOWN INDICATION
     Route: 042
  3. COLISTIN [Suspect]
     Active Substance: COLISTIN
     Indication: PNEUMONIA
     Route: 065
  4. DOBUTAMINE [Suspect]
     Active Substance: DOBUTAMINE HYDROCHLORIDE
     Indication: PRODUCT USED FOR UNKNOWN INDICATION
     Route: 042

REACTIONS (8)
  - Pneumonia acinetobacter [Not Recovered/Not Resolved]
  - Suspected transmission of an infectious agent via product [Not Recovered/Not Resolved]
  - Multiple organ dysfunction syndrome [Fatal]
  - Sepsis [Not Recovered/Not Resolved]
  - Bacteraemia [Not Recovered/Not Resolved]
  - General physical health deterioration [Not Recovered/Not Resolved]
  - Pneumonia klebsiella [Not Recovered/Not Resolved]
  - Fungaemia [Not Recovered/Not Resolved]
